FAERS Safety Report 13141467 (Version 1)
Quarter: 2017Q1

REPORT INFORMATION
  Report Type: Spontaneous
  Country: US (occurrence: US)
  Receive Date: 20170124
  Receipt Date: 20170124
  Transmission Date: 20170428
  Serious: Yes (Hospitalization, Other)
  Sender: FDA-Public Use
  Company Number: US-SUNOVION-2017SUN000190

PATIENT
  Age: 83 Year
  Sex: Female

DRUGS (20)
  1. BREO ELLIPTA [Suspect]
     Active Substance: FLUTICASONE FUROATE\VILANTEROL TRIFENATATE
     Indication: CHRONIC OBSTRUCTIVE PULMONARY DISEASE
     Dosage: 1 PUFF, QD
     Route: 055
     Dates: start: 2014
  2. CRANBERRY + VITAMIN C [Concomitant]
  3. THYROXINE [Concomitant]
     Active Substance: LEVOTHYROXINE
  4. ALBUTEROL. [Concomitant]
     Active Substance: ALBUTEROL
  5. VENTOLIN [Suspect]
     Active Substance: ALBUTEROL SULFATE
     Indication: CHRONIC OBSTRUCTIVE PULMONARY DISEASE
     Dosage: 2 PUFFS, AS NECESSARY
     Route: 055
     Dates: start: 2014
  6. VITAMIN D3 [Concomitant]
     Active Substance: CHOLECALCIFEROL
  7. ALKA-SELTZER [Concomitant]
     Active Substance: ANHYDROUS CITRIC ACID\ASPIRIN\SODIUM BICARBONATE
  8. GAS-X [Concomitant]
     Active Substance: DIMETHICONE
  9. OXYGEN. [Concomitant]
     Active Substance: OXYGEN
  10. MULTIVITAMIN [Concomitant]
     Active Substance: VITAMINS
  11. FISH OIL [Concomitant]
     Active Substance: FISH OIL
  12. IPRATROPIUM [Concomitant]
     Active Substance: IPRATROPIUM
  13. BROVANA [Suspect]
     Active Substance: ARFORMOTEROL TARTRATE
     Indication: CHRONIC OBSTRUCTIVE PULMONARY DISEASE
     Dosage: UNK
     Route: 055
     Dates: end: 20161207
  14. ASCORBIC ACID. [Concomitant]
     Active Substance: ASCORBIC ACID
  15. ELIQUIS [Concomitant]
     Active Substance: APIXABAN
  16. BREO ELLIPTA [Suspect]
     Active Substance: FLUTICASONE FUROATE\VILANTEROL TRIFENATATE
     Dosage: 1 PUFF, UNK
     Route: 055
  17. VENTOLIN [Suspect]
     Active Substance: ALBUTEROL SULFATE
     Indication: BRONCHOSPASM
  18. SOTALOL. [Concomitant]
     Active Substance: SOTALOL
     Dosage: 80 MG, UNK
  19. ASPIRIN. [Concomitant]
     Active Substance: ASPIRIN
  20. MILK OF MAGNESIA [Concomitant]
     Active Substance: MAGNESIUM HYDROXIDE

REACTIONS (5)
  - Thyroid disorder [Not Recovered/Not Resolved]
  - Ophthalmic herpes zoster [Not Recovered/Not Resolved]
  - Labelled drug-drug interaction medication error [Unknown]
  - Cardiac disorder [Unknown]
  - Herpes zoster [Not Recovered/Not Resolved]

NARRATIVE: CASE EVENT DATE: 20160804
